FAERS Safety Report 5618579-0 (Version None)
Quarter: 2008Q1

REPORT INFORMATION
  Report Type: 
  Country: None (occurrence: None)
  Receive Date: 20080207
  Receipt Date: 20080124
  Transmission Date: 20080703
  Serious: Yes (Disabling, Other)
  Sender: FDA-Public Use
  Company Number: MY-MERCK-0801MYS00018

PATIENT
  Age: 60 Year
  Sex: Female
  Weight: 70 kg

DRUGS (9)
  1. JANUVIA [Suspect]
     Indication: DIABETES MELLITUS
     Route: 048
     Dates: start: 20080103, end: 20080112
  2. ROSIGLITAZONE MALEATE [Concomitant]
     Route: 065
  3. ATORVASTATIN [Concomitant]
     Route: 065
  4. UBIDECARENONE [Concomitant]
     Route: 065
  5. METFORMIN HYDROCHLORIDE [Concomitant]
     Route: 065
  6. FUROSEMIDE SODIUM [Concomitant]
     Route: 065
  7. TICLOPIDINE HYDROCHLORIDE [Concomitant]
     Route: 065
  8. IRBESARTAN [Concomitant]
     Route: 065
  9. VITAMIN B COMPLEX [Concomitant]
     Route: 065

REACTIONS (2)
  - CEREBROVASCULAR ACCIDENT [None]
  - HEADACHE [None]
